FAERS Safety Report 10391726 (Version 1)
Quarter: 2014Q3

REPORT INFORMATION
  Report Type: Report from Study
  Country: US (occurrence: US)
  Receive Date: 20140818
  Receipt Date: 20140818
  Transmission Date: 20150326
  Serious: Yes (Other)
  Sender: FDA-Public Use
  Company Number: US-009507513-1408USA009688

PATIENT
  Age: 44 Year

DRUGS (1)
  1. DECADRON [Suspect]
     Active Substance: DEXAMETHASONE
     Dosage: 4 DF, BID
     Route: 048
     Dates: start: 20100920, end: 20101213

REACTIONS (4)
  - Anal abscess [Unknown]
  - Urinary tract infection [Unknown]
  - Diabetes mellitus [Unknown]
  - Constipation [Unknown]

NARRATIVE: CASE EVENT DATE: 20101008
